FAERS Safety Report 7305955-3 (Version None)
Quarter: 2011Q1

REPORT INFORMATION
  Report Type: 
  Country: None (occurrence: None)
  Receive Date: 20110222
  Receipt Date: 20110207
  Transmission Date: 20110831
  Serious: Yes (Disabling, Other)
  Sender: FDA-Public Use
  Company Number: US-VALEANT-2010VX001355

PATIENT
  Age: 57 Year
  Sex: Female

DRUGS (1)
  1. FLUOROURACIL [Suspect]
     Route: 067

REACTIONS (16)
  - BURNING SENSATION [None]
  - VOMITING [None]
  - GAIT DISTURBANCE [None]
  - OEDEMA PERIPHERAL [None]
  - MASS [None]
  - PAIN IN EXTREMITY [None]
  - HAIR DISORDER [None]
  - CONTUSION [None]
  - ARTHRALGIA [None]
  - FATIGUE [None]
  - MUCOSAL INFLAMMATION [None]
  - TOXICITY TO VARIOUS AGENTS [None]
  - DECREASED APPETITE [None]
  - PRURITUS [None]
  - DIARRHOEA [None]
  - WEIGHT DECREASED [None]
